FAERS Safety Report 10216717 (Version 1)
Quarter: 2014Q1

REPORT INFORMATION
  Report Type: Spontaneous
  Country: US (occurrence: None)
  Receive Date: 20140306
  Receipt Date: 20140306
  Transmission Date: 20141002
  Serious: Yes (Other)
  Sender: FDA-Public Use
  Company Number: 163-21880-13045110

PATIENT
  Age: 83 Year
  Sex: Female
  Weight: 46.36 kg

DRUGS (13)
  1. REVLIMID (LENALIDOMIDE) (15 MILLIGRAM, CAPSULES) [Suspect]
     Indication: DIFFUSE LARGE B-CELL LYMPHOMA
     Dosage: 15 MG, 21 IN 28 D, PO
     Route: 048
     Dates: start: 20130225
  2. Z-PAK (AZITHROMYCIN) [Concomitant]
  3. FLAGYL (METRONIDAZOLE) [Concomitant]
  4. HYDROCODONE/ACETAMINOPHEN (REMEDEINE) (TABLETS) [Concomitant]
  5. CARAFATE (SUCRALFATE) (SUSPENSION) [Concomitant]
  6. LORAZEPAM (LORAZEPAM) (TABLETS) [Concomitant]
  7. LOVENOX (HEPARIN-FRACTION, SODIUM SALT) (INJECTION) [Concomitant]
  8. MEGESTROL ACETATE (MEGESTROL ACETATE) (TABLETS) [Concomitant]
  9. NYSTATIN (NYSTATIN) (SUSPENSION) [Concomitant]
  10. VSL#3 (VSL#3) [Concomitant]
  11. ZOFRAN (ONDANSETRON HYDROCHLORIDE) (TABLETS) [Concomitant]
  12. VANCOMYCIN (VANCOMYCIN) [Concomitant]
  13. DOXYCYCLINE (DOXYCYCLINE) [Concomitant]

REACTIONS (4)
  - Neutropenia [None]
  - Diffuse large B-cell lymphoma [None]
  - Disease progression [None]
  - Diarrhoea [None]
